FAERS Safety Report 14054911 (Version 1)
Quarter: 2017Q4

REPORT INFORMATION
  Report Type: Spontaneous
  Country: FR (occurrence: FR)
  Receive Date: 20171006
  Receipt Date: 20171006
  Transmission Date: 20180321
  Serious: Yes (Hospitalization)
  Sender: FDA-Public Use
  Company Number: FR-ASTRAZENECA-2017SF00156

PATIENT
  Age: 24928 Day
  Sex: Female
  Weight: 96 kg

DRUGS (15)
  1. KARDEGIC [Concomitant]
     Active Substance: ASPIRIN DL-LYSINE
     Dosage: 75.0MG UNKNOWN
     Route: 048
     Dates: start: 20170822
  2. OXYNORM [Concomitant]
     Active Substance: OXYCODONE HYDROCHLORIDE
     Dosage: 10.0MG UNKNOWN
     Route: 048
  3. VITAMIN K [Concomitant]
     Active Substance: PHYTONADIONE
     Dosage: 2.0MG UNKNOWN
  4. SPECIALFOLDINE [Concomitant]
     Active Substance: FOLIC ACID
     Dosage: 5.0MG UNKNOWN
     Route: 048
     Dates: start: 20170822
  5. VENOFER [Concomitant]
     Active Substance: IRON SUCROSE
     Route: 042
     Dates: start: 20170822
  6. CETIRIZINE [Concomitant]
     Active Substance: CETIRIZINE HYDROCHLORIDE
     Dosage: 10 MG X2
     Route: 048
  7. OXYCONTIN [Concomitant]
     Active Substance: OXYCODONE HYDROCHLORIDE
     Dosage: 20.0MG UNKNOWN
     Route: 048
     Dates: start: 20170822
  8. INNOHEP [Concomitant]
     Active Substance: TINZAPARIN SODIUM
     Route: 058
     Dates: start: 20170829
  9. PANTOPRAZOLE [Concomitant]
     Active Substance: PANTOPRAZOLE
     Dosage: 40.0MG UNKNOWN
     Route: 048
  10. ACUPAN [Concomitant]
     Active Substance: NEFOPAM HYDROCHLORIDE
     Route: 048
  11. FLAGYL [Suspect]
     Active Substance: METRONIDAZOLE\METRONIDAZOLE HYDROCHLORIDE
     Indication: COLITIS
     Route: 042
     Dates: start: 20170822, end: 20170907
  12. LANTUS [Concomitant]
     Active Substance: INSULIN GLARGINE
     Route: 058
     Dates: start: 20170822
  13. CRESTOR [Suspect]
     Active Substance: ROSUVASTATIN CALCIUM
     Indication: PRODUCT USED FOR UNKNOWN INDICATION
     Route: 048
     Dates: start: 20170822, end: 20170907
  14. ROCEPHINE [Suspect]
     Active Substance: CEFTRIAXONE SODIUM
     Indication: COLITIS
     Route: 042
     Dates: start: 20170822, end: 20170907
  15. DOLIPRANE [Suspect]
     Active Substance: ACETAMINOPHEN
     Indication: PAIN
     Dosage: ON DEMAND
     Route: 048
     Dates: end: 20170907

REACTIONS (2)
  - Cholestasis [Recovering/Resolving]
  - Hepatocellular injury [Recovering/Resolving]

NARRATIVE: CASE EVENT DATE: 20170907
